FAERS Safety Report 12027171 (Version 1)
Quarter: 2016Q1

REPORT INFORMATION
  Report Type: Report from Study
  Country: US (occurrence: US)
  Receive Date: 20160206
  Receipt Date: 20160206
  Transmission Date: 20160526
  Serious: No
  Sender: FDA-Public Use
  Company Number: US-ABBVIE-15K-163-1490295-00

PATIENT
  Sex: Female

DRUGS (2)
  1. HUMIRA [Suspect]
     Active Substance: ADALIMUMAB
     Dosage: DURATION : 3 TO 4 WEEKS
     Route: 058
     Dates: start: 2015, end: 201509
  2. HUMIRA [Suspect]
     Active Substance: ADALIMUMAB
     Indication: UVEITIS
     Dosage: PATIENT THOUGHT MAY BE 150 MG BUT NOT SURE
     Route: 058
     Dates: start: 201507, end: 201507

REACTIONS (3)
  - Feeling abnormal [Unknown]
  - Nervousness [Unknown]
  - Restlessness [Unknown]

NARRATIVE: CASE EVENT DATE: 2015
